FAERS Safety Report 8516306 (Version 2)
Quarter: 2014Q1

REPORT INFORMATION
  Report Type: Spontaneous
  Country: US (occurrence: US)
  Receive Date: 20120417
  Receipt Date: 20140108
  Transmission Date: 20141002
  Serious: No
  Sender: FDA-Public Use
  Company Number: US-ASTRAZENECA-2011SE65305

PATIENT
  Sex: Female

DRUGS (19)
  1. NEXIUM [Suspect]
     Route: 048
  2. TOPROL XL [Suspect]
     Route: 048
  3. CRESTOR [Suspect]
     Route: 048
  4. ALBUTEROL SULFATE [Concomitant]
  5. ALLEGRA [Concomitant]
  6. ANTIVERT [Concomitant]
  7. BENICAR [Concomitant]
  8. CLONIDINE [Concomitant]
  9. ERGOCALCIFEROL [Concomitant]
  10. HUMALOG MIX [Concomitant]
  11. KEFLEX [Concomitant]
  12. NORVASC [Concomitant]
  13. REGLAN [Concomitant]
  14. REGRANEX [Concomitant]
  15. SUCRALFATE [Concomitant]
  16. TUMS [Concomitant]
  17. VITAMIN B-12 [Concomitant]
  18. VITAMIN D [Concomitant]
  19. XANAX [Concomitant]

REACTIONS (11)
  - Renal impairment [Unknown]
  - Type V hyperlipidaemia [Unknown]
  - Hiatus hernia [Unknown]
  - Hypertension [Unknown]
  - Osteoporosis [Unknown]
  - Diabetes mellitus [Unknown]
  - Pruritus [Unknown]
  - Myalgia [Unknown]
  - Dizziness [Unknown]
  - Hepatic function abnormal [Unknown]
  - Intentional drug misuse [Unknown]
